FAERS Safety Report 7369134-6 (Version None)
Quarter: 2011Q1

REPORT INFORMATION
  Report Type: 
  Country: None (occurrence: None)
  Receive Date: 20110323
  Receipt Date: 20110315
  Transmission Date: 20110831
  Serious: Yes (Hospitalization)
  Sender: FDA-Public Use
  Company Number: NL-ROCHE-764878

PATIENT
  Age: 60 Year
  Sex: Male
  Weight: 100.6 kg

DRUGS (19)
  1. PRAVASTATIN [Concomitant]
  2. PREDNISOLONE [Suspect]
     Route: 048
     Dates: start: 20101124, end: 20101126
  3. ENALAPRIL MALEATE [Concomitant]
     Dates: start: 20091013
  4. MYCOPHENOLATE MOFETIL [Suspect]
     Route: 048
     Dates: start: 20090116
  5. CYCLOSPORINE [Suspect]
     Route: 048
     Dates: start: 20100114, end: 20100316
  6. PREDNISOLONE [Suspect]
     Route: 048
     Dates: start: 20101029, end: 20101122
  7. PREDNISOLONE [Suspect]
     Route: 048
     Dates: start: 20101203
  8. PREDNISOLONE [Suspect]
     Route: 048
     Dates: start: 20101020, end: 20101028
  9. PREDNISOLONE [Suspect]
     Route: 048
     Dates: start: 20101123, end: 20101126
  10. PREDNISOLONE [Suspect]
     Route: 048
     Dates: start: 20101128, end: 20101202
  11. PANTOPRAZOLE [Concomitant]
     Dates: start: 20090115
  12. INSULIN GLARGINE [Concomitant]
  13. TAMSULOSIN HCL [Concomitant]
     Dates: start: 20091013
  14. MYCOPHENOLATE MOFETIL [Suspect]
     Route: 048
  15. CYCLOSPORINE [Suspect]
     Route: 048
     Dates: start: 20090116
  16. PREDNISOLONE [Suspect]
     Route: 048
     Dates: start: 20090114, end: 20101019
  17. METOPROLOL [Concomitant]
     Dates: start: 20091013
  18. MYCOPHENOLATE MOFETIL [Suspect]
     Route: 048
     Dates: start: 20100114
  19. CYCLOSPORINE [Suspect]
     Route: 048
     Dates: start: 20100317

REACTIONS (9)
  - DRUG HYPERSENSITIVITY [None]
  - OSTEOMYELITIS [None]
  - UROSEPSIS [None]
  - CELLULITIS [None]
  - SKIN ULCER [None]
  - RESPIRATORY FAILURE [None]
  - ESCHERICHIA TEST POSITIVE [None]
  - HYPERKERATOSIS [None]
  - ENTEROBACTER TEST POSITIVE [None]
